FAERS Safety Report 13689238 (Version 1)
Quarter: 2017Q2

REPORT INFORMATION
  Report Type: Spontaneous
  Country: US (occurrence: US)
  Receive Date: 20170625
  Receipt Date: 20170625
  Transmission Date: 20170830
  Serious: Yes (Disabling)
  Sender: FDA-Public Use
  Company Number: None

PATIENT
  Age: 37 Year
  Sex: Female
  Weight: 45 kg

DRUGS (2)
  1. LORAZEPAM. [Suspect]
     Active Substance: LORAZEPAM
     Indication: ANXIETY
     Dosage: ?          OTHER STRENGTH:MG;QUANTITY:1 TABLET(S);?3 TIMES A DAY ORAL
     Route: 048
     Dates: start: 20121101
  2. GABAPENTIN. [Concomitant]
     Active Substance: GABAPENTIN

REACTIONS (10)
  - Chest pain [None]
  - Abdominal pain [None]
  - Bedridden [None]
  - Palpitations [None]
  - Gastric disorder [None]
  - Anxiety [None]
  - Muscle spasms [None]
  - Depression [None]
  - Insomnia [None]
  - Migraine [None]

NARRATIVE: CASE EVENT DATE: 20130301
